FAERS Safety Report 21478599 (Version 1)
Quarter: 2022Q4

REPORT INFORMATION
  Report Type: Spontaneous
  Country: CA (occurrence: CA)
  Receive Date: 20221019
  Receipt Date: 20221019
  Transmission Date: 20230113
  Serious: Yes (Other)
  Sender: FDA-Public Use
  Company Number: CA-TEVA-2022-CA-2816864

PATIENT
  Age: 58 Year
  Sex: Female

DRUGS (3)
  1. CISPLATIN [Suspect]
     Active Substance: CISPLATIN
     Indication: Non-small cell lung cancer metastatic
     Route: 065
  2. PEMBROLIZUMAB [Concomitant]
     Active Substance: PEMBROLIZUMAB
     Indication: Non-small cell lung cancer metastatic
  3. PEMETREXED [Concomitant]
     Active Substance: PEMETREXED
     Indication: Non-small cell lung cancer metastatic

REACTIONS (2)
  - Polymyalgia rheumatica [Recovered/Resolved]
  - Off label use [Recovered/Resolved]
